FAERS Safety Report 4991188-2 (Version None)
Quarter: 2006Q2

REPORT INFORMATION
  Report Type: 
  Country: None (occurrence: None)
  Receive Date: 20060427
  Receipt Date: 20060411
  Transmission Date: 20061013
  Serious: Yes (Hospitalization)
  Sender: FDA-Public Use
  Company Number: DSA_27955_2006

PATIENT
  Age: 55 Year
  Sex: Female

DRUGS (2)
  1. TAVOR /00273201/ [Suspect]
     Dosage: 3 MG ONCE PO
     Route: 048
     Dates: start: 20060325, end: 20060325
  2. TRIMIPRAMINE MALEATE [Suspect]
     Dosage: 5000 MG ONCE PO
     Route: 048
     Dates: start: 20060325, end: 20060325

REACTIONS (4)
  - INTENTIONAL OVERDOSE [None]
  - LOSS OF CONSCIOUSNESS [None]
  - SUICIDE ATTEMPT [None]
  - VOMITING [None]
